FAERS Safety Report 10721801 (Version 1)
Quarter: 2015Q1

REPORT INFORMATION
  Report Type: Spontaneous
  Country: US (occurrence: US)
  Receive Date: 20150119
  Receipt Date: 20150119
  Transmission Date: 20150721
  Serious: No
  Sender: FDA-Public Use
  Company Number: US-BAUSCH-BL-2014-007314

PATIENT
  Age: 43 Year
  Sex: Male
  Weight: 65.83 kg

DRUGS (1)
  1. ALAWAY [Suspect]
     Active Substance: KETOTIFEN FUMARATE
     Indication: HYPERSENSITIVITY
     Dosage: 1 DROP TO BOTH EYES AS DIRECTED
     Route: 061

REACTIONS (1)
  - Mydriasis [Recovered/Resolved]
